FAERS Safety Report 13879947 (Version 1)
Quarter: 2017Q3

REPORT INFORMATION
  Report Type: Spontaneous
  Country: US (occurrence: US)
  Receive Date: 20170818
  Receipt Date: 20170818
  Transmission Date: 20171127
  Serious: No
  Sender: FDA-Public Use
  Company Number: US-ASTELLAS-2016US031287

PATIENT
  Age: 56 Year
  Sex: Male

DRUGS (4)
  1. AMBISOME [Suspect]
     Active Substance: AMPHOTERICIN B
     Indication: DIABETIC KETOACIDOSIS
  2. AMBISOME [Suspect]
     Active Substance: AMPHOTERICIN B
     Indication: FUNGAL INFECTION
  3. AMBISOME [Suspect]
     Active Substance: AMPHOTERICIN B
     Indication: CHRONIC SINUSITIS
  4. AMBISOME [Suspect]
     Active Substance: AMPHOTERICIN B
     Indication: ACUTE KIDNEY INJURY
     Route: 065
     Dates: start: 20160630, end: 20160707

REACTIONS (1)
  - Off label use [Unknown]

NARRATIVE: CASE EVENT DATE: 20160630
